FAERS Safety Report 12246186 (Version 1)
Quarter: 2016Q2

REPORT INFORMATION
  Report Type: Spontaneous
  Country: CH (occurrence: CH)
  Receive Date: 20160407
  Receipt Date: 20160407
  Transmission Date: 20160815
  Serious: Yes (Hospitalization)
  Sender: FDA-Public Use
  Company Number: CH-MEDA-2016040012

PATIENT
  Age: 39 Year
  Sex: Female

DRUGS (19)
  1. CEFTRIAXON [Suspect]
     Active Substance: CEFTRIAXONE
     Dates: start: 20150528, end: 20150609
  2. BECOZYM [Concomitant]
     Active Substance: VITAMINS
     Dates: end: 20150628
  3. MAGNESIOCARD [Concomitant]
     Active Substance: MAGNESIUM ASPARTATE HYDROCHLORIDE
     Dates: end: 20150628
  4. VITAMIN D3 WILD [Concomitant]
     Dosage: 10000 IU (500 X 20)
  5. TOREM 5 MG [Suspect]
     Active Substance: TORSEMIDE
     Route: 048
     Dates: end: 20150628
  6. CEFTRIAXON [Suspect]
     Active Substance: CEFTRIAXONE
     Dates: start: 20150526, end: 20150526
  7. PLUS KALIUM 600 MG [Concomitant]
     Dates: end: 20150628
  8. SUPRADYN ENERGY [Concomitant]
     Dates: end: 20150628
  9. PARACETAMOL [Concomitant]
     Active Substance: ACETAMINOPHEN
  10. ESOMEP 40 MG [Suspect]
     Active Substance: OMEPRAZOLE
     Route: 048
     Dates: end: 20150628
  11. XIFAXAN [Suspect]
     Active Substance: RIFAXIMIN
     Route: 048
     Dates: end: 20150628
  12. BENERVA 300 MG [Concomitant]
     Dates: end: 20150628
  13. ALDACTONE [Suspect]
     Active Substance: SPIRONOLACTONE
     Dosage: 0.5 PER DAY
     Route: 048
     Dates: end: 20150628
  14. DUPHALAC 20 ML [Concomitant]
  15. HALDOL [Suspect]
     Active Substance: HALOPERIDOL
     Route: 048
     Dates: end: 20150628
  16. TAZOBAC [Suspect]
     Active Substance: PIPERACILLIN SODIUM\TAZOBACTAM SODIUM
     Route: 048
     Dates: start: 20150526, end: 20150528
  17. CEFTRIAXON [Suspect]
     Active Substance: CEFTRIAXONE
     Dates: start: 20150624, end: 20150625
  18. KONAKION 1 MG [Concomitant]
     Dates: end: 20150628
  19. MEROPENEM. [Concomitant]
     Active Substance: MEROPENEM
     Dates: start: 20150625, end: 20150730

REACTIONS (2)
  - Drug eruption [Recovering/Resolving]
  - Eosinophilia [Recovered/Resolved]

NARRATIVE: CASE EVENT DATE: 20150622
